FAERS Safety Report 16363664 (Version 2)
Quarter: 2019Q3

REPORT INFORMATION
  Report Type: Report from Study
  Country: JP (occurrence: JP)
  Receive Date: 20190528
  Receipt Date: 20190815
  Transmission Date: 20191004
  Serious: Yes (Death, Hospitalization, Disabling, Other)
  Sender: FDA-Public Use
  Company Number: JP-ASTELLAS-2019JP009620

PATIENT
  Age: 42 Year
  Sex: Male
  Weight: 56 kg

DRUGS (13)
  1. BAKTAR [Concomitant]
     Active Substance: SULFAMETHOXAZOLE\TRIMETHOPRIM
     Indication: PROPHYLAXIS
     Dosage: 2 DF/DAY, UNKNOWN FREQ.
     Route: 048
     Dates: end: 20190128
  2. ACICLOVIR [Concomitant]
     Active Substance: ACYCLOVIR
     Indication: PROPHYLAXIS
     Dosage: 200 MG/DAY, UNKNOWN FREQ.
     Route: 048
     Dates: end: 20190128
  3. POLYMYXIN B. [Concomitant]
     Active Substance: POLYMYXIN B
     Indication: PROPHYLAXIS
     Dosage: 3 DF/DAY, UNKNOWN FREQ.
     Route: 048
     Dates: end: 20190128
  4. VANCOMYCIN HYDROCHLORIDE. [Concomitant]
     Active Substance: VANCOMYCIN HYDROCHLORIDE
     Indication: PRODUCT USED FOR UNKNOWN INDICATION
     Dosage: 2 G/DAY, UNKNOWN FREQ.
     Route: 065
     Dates: start: 20190122, end: 20190128
  5. DAIKENCHUTO [Concomitant]
     Active Substance: HERBALS
     Indication: PRODUCT USED FOR UNKNOWN INDICATION
     Dosage: 7.5 G/DAY, UNKNOWN FREQ.
     Route: 048
     Dates: start: 20190124, end: 20190128
  6. URSODEOXYCHOLIC ACID [Concomitant]
     Active Substance: URSODIOL
     Indication: PRODUCT USED FOR UNKNOWN INDICATION
     Dosage: 3 DF/DAY, UNKNOWN FREQ.
     Route: 048
     Dates: start: 20190125, end: 20190218
  7. ZYVOX [Concomitant]
     Active Substance: LINEZOLID
     Indication: PRODUCT USED FOR UNKNOWN INDICATION
     Dosage: 1200 MG/DAY, UNKNOWN FREQ.
     Route: 065
     Dates: start: 20190128, end: 20190218
  8. MIYA-BM [Concomitant]
     Active Substance: CLOSTRIDIUM BUTYRICUM SPORES STRAIN M-55
     Indication: PROPHYLAXIS
     Dosage: 3 G/DAY, UNKNOWN FREQ.
     Route: 048
     Dates: end: 20190128
  9. REBAMIPIDE [Concomitant]
     Active Substance: REBAMIPIDE
     Indication: PROPHYLAXIS
     Dosage: 3 DF/DAY, UNKNOWN FREQ.
     Route: 048
     Dates: end: 20190124
  10. LANSOPRAZOLE. [Concomitant]
     Active Substance: LANSOPRAZOLE
     Indication: PROPHYLAXIS
     Dosage: 30 MG/DAY, UNKNOWN FREQ.
     Route: 048
     Dates: end: 20190128
  11. ASP2215 [Suspect]
     Active Substance: GILTERITINIB
     Indication: ACUTE MYELOID LEUKAEMIA RECURRENT
     Route: 048
     Dates: start: 20190119, end: 20190214
  12. MEROPENEM. [Concomitant]
     Active Substance: MEROPENEM
     Indication: PNEUMONITIS
     Dosage: 3000 MG/DAY, UNKNOWN FREQ.
     Route: 065
     Dates: end: 20190503
  13. ALLOPURINOL. [Concomitant]
     Active Substance: ALLOPURINOL
     Indication: PROPHYLAXIS
     Dosage: 300 MG/DAY, UNKNOWN FREQ.
     Route: 048
     Dates: end: 20190124

REACTIONS (5)
  - Disseminated intravascular coagulation [Not Recovered/Not Resolved]
  - Hypoxia [Not Recovered/Not Resolved]
  - Pneumonia [Fatal]
  - Blood bilirubin increased [Recovering/Resolving]
  - Constipation [Recovering/Resolving]

NARRATIVE: CASE EVENT DATE: 20190121
